FAERS Safety Report 8351325-9 (Version None)
Quarter: 2012Q2

REPORT INFORMATION
  Report Type: 
  Country: None (occurrence: None)
  Receive Date: 20120510
  Receipt Date: 20120425
  Transmission Date: 20120825
  Serious: Yes (Hospitalization, Other)
  Sender: FDA-Public Use
  Company Number: CA-BAXTER-2012BAX003891

PATIENT
  Sex: Male

DRUGS (8)
  1. DIANEAL [Suspect]
  2. DIANEAL [Suspect]
     Route: 033
  3. EXTRANEAL [Suspect]
  4. DIANEAL [Suspect]
     Route: 033
  5. DIANEAL [Suspect]
  6. DIANEAL [Suspect]
     Route: 033
  7. DIANEAL [Suspect]
  8. EXTRANEAL [Suspect]
     Route: 033

REACTIONS (2)
  - PERITONITIS BACTERIAL [None]
  - GASTROINTESTINAL HAEMORRHAGE [None]
